FAERS Safety Report 7340869-4 (Version None)
Quarter: 2011Q1

REPORT INFORMATION
  Report Type: 
  Country: None (occurrence: None)
  Receive Date: 20110228
  Receipt Date: 20110207
  Transmission Date: 20110831
  Serious: Yes (Hospitalization)
  Sender: FDA-Public Use
  Company Number: IMP_05349_2011

PATIENT
  Age: 73 Year
  Sex: Female

DRUGS (3)
  1. LEVOTHYROXINE [Suspect]
     Indication: PEPTIC ULCER
     Dosage: (100 UG QD)
  2. OMEPRAZOLE [Suspect]
     Indication: PEPTIC ULCER
     Dosage: (20 MG QD)
  3. COMBINATION ACETAMINOPHEN AND CAFFEINE [Suspect]
     Indication: HEADACHE
     Dosage: (DF)

REACTIONS (9)
  - MALAISE [None]
  - PYREXIA [None]
  - ASTHENIA [None]
  - TUBULOINTERSTITIAL NEPHRITIS [None]
  - MYALGIA [None]
  - ABDOMINAL PAIN [None]
  - HEADACHE [None]
  - CHILLS [None]
  - RENAL FAILURE ACUTE [None]
